FAERS Safety Report 4776376-2 (Version None)
Quarter: 2005Q3

REPORT INFORMATION
  Report Type: 
  Country: None (occurrence: None)
  Receive Date: 20050921
  Receipt Date: 20050901
  Transmission Date: 20060218
  Serious: Yes (Hospitalization, Other)
  Sender: FDA-Public Use
  Company Number: DE_050816723

PATIENT
  Age: 86 Year
  Sex: Female
  Weight: 62 kg

DRUGS (9)
  1. FORTEO [Suspect]
     Indication: OSTEOPOROSIS
     Dates: start: 20050321, end: 20050101
  2. DURAGESIC-100 [Concomitant]
  3. CALCILAC [Concomitant]
  4. PREDNISOLONE [Concomitant]
  5. NORVASC [Concomitant]
  6. CIBACEN (BENAZEPRIL HYDROCHLORIDE) [Concomitant]
  7. PANTOZOL (PATOPRAZOLE SODIUM) [Concomitant]
  8. BIFITERAL (LACTULOSE0 [Concomitant]
  9. NOVALGIN (METAMIZOLE SODIUM MONOHYDRATE) [Concomitant]

REACTIONS (31)
  - ABDOMINAL PAIN UPPER [None]
  - AORTIC VALVE INCOMPETENCE [None]
  - BACK PAIN [None]
  - BLOOD BILIRUBIN INCREASED [None]
  - BLOOD CREATINE PHOSPHOKINASE INCREASED [None]
  - BLOOD PRESSURE INCREASED [None]
  - BUNDLE BRANCH BLOCK RIGHT [None]
  - CHILLS [None]
  - CYANOSIS [None]
  - DIZZINESS [None]
  - EJECTION FRACTION DECREASED [None]
  - ESCHERICHIA URINARY TRACT INFECTION [None]
  - GENERAL PHYSICAL HEALTH DETERIORATION [None]
  - HAEMOGLOBIN DECREASED [None]
  - HEPATIC STEATOSIS [None]
  - HYPERHIDROSIS [None]
  - MOVEMENT DISORDER [None]
  - NAUSEA [None]
  - NIGHT SWEATS [None]
  - OBSTRUCTIVE AIRWAYS DISORDER [None]
  - PALPATORY FINDING ABNORMAL [None]
  - PANCREATITIS [None]
  - PERICARDIAL EFFUSION [None]
  - PHYSICAL EXAMINATION ABNORMAL [None]
  - PULMONARY HYPERTENSION [None]
  - RALES [None]
  - RESPIRATORY FAILURE [None]
  - SENSORY DISTURBANCE [None]
  - SUPRAVENTRICULAR EXTRASYSTOLES [None]
  - TRICUSPID VALVE INCOMPETENCE [None]
  - URINARY TRACT INFECTION [None]
